FAERS Safety Report 18227826 (Version 1)
Quarter: 2020Q3

REPORT INFORMATION
  Report Type: Spontaneous
  Country: FR (occurrence: FR)
  Receive Date: 20200903
  Receipt Date: 20200903
  Transmission Date: 20201103
  Serious: Yes (Other)
  Sender: FDA-Public Use
  Company Number: FR-ACCORD-198546

PATIENT
  Age: 34 Year
  Sex: Male
  Weight: 73 kg

DRUGS (11)
  1. DOXORUBICIN [Suspect]
     Active Substance: DOXORUBICIN
     Indication: CHEMOTHERAPY
     Route: 041
     Dates: start: 201404, end: 201408
  2. ETOPOSIDE. [Suspect]
     Active Substance: ETOPOSIDE
     Indication: TRANSPLANT
     Route: 041
     Dates: start: 20171229
  3. ARACYTINE [Suspect]
     Active Substance: CYTARABINE
     Indication: CHEMOTHERAPY
     Dosage: ON 3 CURES
     Route: 041
     Dates: start: 201710, end: 201711
  4. MABTHERA [Suspect]
     Active Substance: RITUXIMAB
     Indication: CHEMOTHERAPY
     Route: 042
     Dates: start: 201410, end: 201606
  5. ENDOXAN [Suspect]
     Active Substance: CYCLOPHOSPHAMIDE
     Indication: CHEMOTHERAPY
     Route: 041
     Dates: start: 201404, end: 201408
  6. MELPHALAN. [Suspect]
     Active Substance: MELPHALAN
     Indication: TRANSPLANT
     Route: 042
     Dates: start: 20171229
  7. OXALIPLATIN. [Suspect]
     Active Substance: OXALIPLATIN
     Indication: CHEMOTHERAPY
     Route: 042
     Dates: start: 201710, end: 201711
  8. IBRUTINIB [Suspect]
     Active Substance: IBRUTINIB
     Indication: CHEMOTHERAPY
     Dosage: 560 MG PER DAY FOR 13 DAYS AT EACH TREATMENT (3 CURES)
     Route: 048
     Dates: start: 201710, end: 201711
  9. VINCRISTINE [Suspect]
     Active Substance: VINCRISTINE
     Indication: CHEMOTHERAPY
     Route: 041
     Dates: start: 201404, end: 201408
  10. DEXAMETHASONE. [Concomitant]
     Active Substance: DEXAMETHASONE
     Indication: CHEMOTHERAPY
     Dosage: 40 MG FOR 4 DAYS OVER 3 CURES
     Route: 042
     Dates: start: 201710, end: 201711
  11. BICNU [Suspect]
     Active Substance: CARMUSTINE
     Indication: TRANSPLANT
     Route: 041
     Dates: start: 20171229

REACTIONS (1)
  - Ventricular dysfunction [Not Recovered/Not Resolved]

NARRATIVE: CASE EVENT DATE: 201809
